FAERS Safety Report 17370952 (Version 3)
Quarter: 2020Q4

REPORT INFORMATION
  Report Type: Spontaneous
  Country: US (occurrence: US)
  Receive Date: 20200205
  Receipt Date: 20201226
  Transmission Date: 20210113
  Serious: No
  Sender: FDA-Public Use
  Company Number: US-SA-2020SA022252

PATIENT

DRUGS (15)
  1. DUPIXENT [Suspect]
     Active Substance: DUPILUMAB
     Indication: UPPER RESPIRATORY TRACT INFECTION
  2. BIOTIN [Concomitant]
     Active Substance: BIOTIN
  3. IBUPROFEN. [Concomitant]
     Active Substance: IBUPROFEN
  4. NIACIN. [Concomitant]
     Active Substance: NIACIN
  5. NAPROSYN [Concomitant]
     Active Substance: NAPROXEN
  6. DUPIXENT [Suspect]
     Active Substance: DUPILUMAB
     Indication: ATRIAL FIBRILLATION
  7. DUPIXENT [Suspect]
     Active Substance: DUPILUMAB
     Indication: RHINITIS ALLERGIC
  8. FIBER [Concomitant]
     Active Substance: PSYLLIUM HUSK
  9. DUPIXENT [Suspect]
     Active Substance: DUPILUMAB
     Indication: ASTHMA
  10. VITAMIN D3 [Concomitant]
     Active Substance: CHOLECALCIFEROL
  11. DUPIXENT [Suspect]
     Active Substance: DUPILUMAB
     Indication: HYPERLIPIDAEMIA
  12. DUPIXENT [Suspect]
     Active Substance: DUPILUMAB
     Indication: DERMATITIS ATOPIC
     Dosage: 300 MG, QOW
     Route: 058
  13. DUPIXENT [Suspect]
     Active Substance: DUPILUMAB
     Indication: DERMATITIS ALLERGIC
     Dosage: 300 MG, QOW
     Route: 058
     Dates: start: 201911
  14. DUPIXENT [Suspect]
     Active Substance: DUPILUMAB
     Indication: OSTEOARTHRITIS
  15. DUPIXENT [Suspect]
     Active Substance: DUPILUMAB
     Indication: ILLNESS

REACTIONS (6)
  - Injection site pain [Unknown]
  - Product use in unapproved indication [Unknown]
  - Limb operation [Unknown]
  - Knee arthroplasty [Unknown]
  - Product preparation error [Unknown]
  - Rash [Unknown]

NARRATIVE: CASE EVENT DATE: 2020
